FAERS Safety Report 9032696 (Version 2)
Quarter: 2013Q1

REPORT INFORMATION
  Report Type: Spontaneous
  Country: US (occurrence: None)
  Receive Date: 20130110
  Receipt Date: 20130111
  Transmission Date: 20140127
  Serious: Yes (Hospitalization)
  Sender: FDA-Public Use
  Company Number: 1550642

PATIENT
  Age: 12 Year
  Sex: Male

DRUGS (8)
  1. BUPIVACAINE HYDROCHLORIDE [Suspect]
     Indication: EPIDURAL ANALGESIA
  2. BUTORPHANOL TARTRATE [Suspect]
     Indication: EPIDURAL ANALGESIA
  3. CHLOROPROCAINE HYDROCHLORIDE [Suspect]
     Indication: EPIDURAL ANALGESIA
     Route: 008
  4. FENTANYL CITRATE [Suspect]
     Indication: EPIDURAL ANALGESIA
  5. LIDOCAINE HCL [Suspect]
     Indication: EPIDURAL ANALGESIA
  6. ROPIVACAINE [Suspect]
     Indication: EPIDURAL ANALGESIA
  7. CLONIDINE [Suspect]
     Indication: EPIDURAL ANALGESIA
  8. BUPIVACAINE [Suspect]
     Indication: EPIDURAL ANALGESIA

REACTIONS (4)
  - Urinary incontinence [None]
  - Hypoaesthesia [None]
  - Areflexia [None]
  - Anorectal disorder [None]
